FAERS Safety Report 9478303 (Version 1)
Quarter: 2013Q3

REPORT INFORMATION
  Report Type: Spontaneous
  Country: US (occurrence: None)
  Receive Date: 20130822
  Receipt Date: 20130822
  Transmission Date: 20140515
  Serious: Yes (Disabling)
  Sender: FDA-Public Use
  Company Number: SYM-2013-09011

PATIENT
  Age: 74 Year
  Sex: Female

DRUGS (1)
  1. XENAZINE [Suspect]
     Indication: CHOREA
     Dosage: 2 IN 1 D
     Route: 048
     Dates: start: 20100804

REACTIONS (1)
  - Cerebrovascular accident [None]
